FAERS Safety Report 23043748 (Version 3)
Quarter: 2023Q4

REPORT INFORMATION
  Report Type: Spontaneous
  Country: US (occurrence: US)
  Receive Date: 20231009
  Receipt Date: 20231127
  Transmission Date: 20240110
  Serious: Yes (Other)
  Sender: FDA-Public Use
  Company Number: US-BRISTOL-MYERS SQUIBB COMPANY-2023-140673

PATIENT
  Age: 67 Year
  Sex: Male

DRUGS (1)
  1. LENALIDOMIDE [Suspect]
     Active Substance: LENALIDOMIDE
     Indication: Plasma cell myeloma
     Dosage: FREQUENCY: 1 CAPSULE BY MOUTH WHOLE WITH WATER AT THE SAME TIME EVERY DAY ON DAYS 1-14 OF EACH 21 DA
     Route: 048
     Dates: start: 20230725

REACTIONS (3)
  - Urinary tract infection [Recovering/Resolving]
  - Blood test abnormal [Not Recovered/Not Resolved]
  - Off label use [Unknown]
